FAERS Safety Report 8242802-X (Version None)
Quarter: 2012Q1

REPORT INFORMATION
  Report Type: 
  Country: None (occurrence: None)
  Receive Date: 20120329
  Receipt Date: 20120323
  Transmission Date: 20120608
  Serious: Yes (Hospitalization)
  Sender: FDA-Public Use
  Company Number: US-BAYER-2011-086267

PATIENT
  Age: 25 Year
  Sex: Female
  Weight: 102.4 kg

DRUGS (2)
  1. DROSPIRENONE AND ETHINYL ESTRADIOL [Suspect]
     Indication: CONTRACEPTION
     Dosage: UNK
     Route: 048
     Dates: start: 20090401, end: 20091001
  2. ZOLOFT [Concomitant]
     Indication: DEPRESSION

REACTIONS (2)
  - GALLBLADDER DISORDER [None]
  - PAIN [None]
